FAERS Safety Report 6728157-8 (Version None)
Quarter: 2010Q2

REPORT INFORMATION
  Report Type: 
  Country: None (occurrence: None)
  Receive Date: 20100517
  Receipt Date: 20100506
  Transmission Date: 20101027
  Serious: Yes (Other)
  Sender: FDA-Public Use
  Company Number: A0858535A

PATIENT
  Age: 18 Year
  Sex: Male

DRUGS (3)
  1. LAMICTAL [Suspect]
     Indication: EPILEPSY
     Dosage: 150MG TWICE PER DAY
     Route: 048
     Dates: start: 20040101
  2. TRILEPTAL [Concomitant]
  3. RANITIDINE [Concomitant]

REACTIONS (4)
  - BLOOD AMYLASE INCREASED [None]
  - CONVULSION [None]
  - NAUSEA [None]
  - VOMITING [None]
